FAERS Safety Report 19961124 (Version 1)
Quarter: 2021Q4

REPORT INFORMATION
  Report Type: Spontaneous
  Country: TW (occurrence: TW)
  Receive Date: 20211016
  Receipt Date: 20211016
  Transmission Date: 20220303
  Serious: Yes (Hospitalization)
  Sender: FDA-Public Use
  Company Number: TW-NOVARTISPH-NVSC2021TW235557

PATIENT
  Weight: 64 kg

DRUGS (1)
  1. JADENU [Suspect]
     Active Substance: DEFERASIROX
     Indication: Thalassaemia
     Dosage: 1440 MG, QD
     Route: 048
     Dates: start: 20211004, end: 20211011

REACTIONS (2)
  - Abdominal discomfort [Unknown]
  - Renal impairment [Unknown]

NARRATIVE: CASE EVENT DATE: 20211011
